FAERS Safety Report 8579530-7 (Version None)
Quarter: 2012Q3

REPORT INFORMATION
  Report Type: 
  Country: None (occurrence: None)
  Receive Date: 20120808
  Receipt Date: 20120730
  Transmission Date: 20120928
  Serious: Yes (Other)
  Sender: FDA-Public Use
  Company Number: CA-JNJFOC-20120801150

PATIENT
  Sex: Male
  Weight: 88 kg

DRUGS (8)
  1. IMURAN [Concomitant]
     Route: 065
  2. ARTHROTEC [Concomitant]
     Route: 065
  3. CYMBALTA [Concomitant]
     Route: 065
  4. NEXIUM [Concomitant]
     Route: 065
  5. TYLENOL W/ CODEINE NO. 3 [Concomitant]
     Route: 065
  6. REMICADE [Suspect]
     Indication: CROHN'S DISEASE
     Route: 042
     Dates: start: 20120506
  7. FLEXERIL [Concomitant]
     Route: 065
  8. ZOPICLONE [Concomitant]
     Route: 065

REACTIONS (1)
  - LACERATION [None]
